FAERS Safety Report 5674754-0 (Version None)
Quarter: 2008Q1

REPORT INFORMATION
  Report Type: 
  Country: None (occurrence: None)
  Receive Date: 20080320
  Receipt Date: 20080318
  Transmission Date: 20080703
  Serious: Yes (Other)
  Sender: FDA-Public Use
  Company Number: AU-MERCK-0801AUS00110

PATIENT
  Sex: Female

DRUGS (4)
  1. FOSAMAX [Suspect]
     Indication: BLOOD CALCIUM DECREASED
     Route: 048
     Dates: start: 20070101, end: 20071201
  2. PREDNISONE [Concomitant]
     Route: 065
  3. FOLIC ACID [Concomitant]
     Route: 065
  4. GLOBULIN, IMMUNE [Concomitant]
     Route: 065

REACTIONS (6)
  - GASTROINTESTINAL CARCINOMA [None]
  - GINGIVAL BLEEDING [None]
  - HAEMATEMESIS [None]
  - INAPPROPRIATE SCHEDULE OF DRUG ADMINISTRATION [None]
  - INCORRECT DOSE ADMINISTERED [None]
  - SENSATION OF FOREIGN BODY [None]
